FAERS Safety Report 8015556-X (Version None)
Quarter: 2011Q4

REPORT INFORMATION
  Report Type: 
  Country: None (occurrence: None)
  Receive Date: 20111228
  Receipt Date: 20111228
  Transmission Date: 20120403
  Serious: Yes (Hospitalization)
  Sender: FDA-Public Use
  Company Number: None

PATIENT
  Age: 38 Year
  Sex: Male
  Weight: 63.6 kg

DRUGS (1)
  1. VANCOMYCIN [Suspect]
     Dosage: 1 GM BID IV
     Route: 042
     Dates: start: 20111018, end: 20111019

REACTIONS (2)
  - RASH [None]
  - FLUSHING [None]
